FAERS Safety Report 10962821 (Version 3)
Quarter: 2015Q4

REPORT INFORMATION
  Report Type: Spontaneous
  Country: US (occurrence: US)
  Receive Date: 20150327
  Receipt Date: 20151029
  Transmission Date: 20160304
  Serious: Yes (Hospitalization, Other)
  Sender: FDA-Public Use
  Company Number: US-009507513-1503USA009501

PATIENT
  Sex: Male

DRUGS (7)
  1. TEMODAR [Suspect]
     Active Substance: TEMOZOLOMIDE
     Dosage: 340 MG, CYCLICAL, 5 DAYS ON AND 23 DAYS OFF, A 28 DAYS CYCLE
     Route: 048
     Dates: start: 20141230, end: 20150103
  2. TEMODAR [Suspect]
     Active Substance: TEMOZOLOMIDE
     Dosage: 145 MG
     Route: 048
     Dates: start: 20140808, end: 20140918
  3. VITAMIN D [Concomitant]
     Active Substance: CHOLECALCIFEROL
  4. TEMODAR [Suspect]
     Active Substance: TEMOZOLOMIDE
     Dosage: 285 MG, CYCLICAL, 5 DAYS ON AND 23 DAYS OFF, A 28 DAYS CYCLE
     Route: 048
     Dates: start: 20141016, end: 20141020
  5. TEMODAR [Suspect]
     Active Substance: TEMOZOLOMIDE
     Indication: GLIOBLASTOMA
     Dosage: 350 MG
     Route: 048
     Dates: start: 20150307
  6. TEMODAR [Suspect]
     Active Substance: TEMOZOLOMIDE
     Dosage: 380 MG, CYCLICAL, 5 DAYS ON AND 23 DAYS OFF, A 28 DAYS CYCLE
     Route: 048
     Dates: start: 20141115, end: 20141119
  7. VITAMINS (UNSPECIFIED) [Concomitant]
     Active Substance: VITAMINS

REACTIONS (17)
  - Incontinence [Not Recovered/Not Resolved]
  - Hypoacusis [Not Recovered/Not Resolved]
  - Adverse event [Unknown]
  - Drug ineffective [Unknown]
  - Productive cough [Not Recovered/Not Resolved]
  - Fatigue [Not Recovered/Not Resolved]
  - Neutrophil count decreased [Not Recovered/Not Resolved]
  - Delirium [Recovered/Resolved]
  - Memory impairment [Not Recovered/Not Resolved]
  - Confusional state [Not Recovered/Not Resolved]
  - Memory impairment [Recovered/Resolved]
  - Confusional state [Recovered/Resolved]
  - Gout [Not Recovered/Not Resolved]
  - Sputum discoloured [Not Recovered/Not Resolved]
  - Blood glucose decreased [Not Recovered/Not Resolved]
  - Vitamin D decreased [Not Recovered/Not Resolved]
  - Gait disturbance [Not Recovered/Not Resolved]

NARRATIVE: CASE EVENT DATE: 2014
